FAERS Safety Report 7666216-6 (Version None)
Quarter: 2011Q3

REPORT INFORMATION
  Report Type: 
  Country: None (occurrence: None)
  Receive Date: 20110806
  Receipt Date: 20110708
  Transmission Date: 20111222
  Serious: No
  Sender: FDA-Public Use
  Company Number: US-ABBOTT-11P-163-0837568-00

PATIENT
  Sex: Male
  Weight: 90.8 kg

DRUGS (3)
  1. THYROID TAB [Concomitant]
     Indication: PRODUCT USED FOR UNKNOWN INDICATION
  2. NIASPAN [Suspect]
     Indication: BLOOD CHOLESTEROL INCREASED
     Dosage: AT BEDTIME
  3. NIASPAN [Suspect]
     Indication: BLOOD TRIGLYCERIDES

REACTIONS (4)
  - MYALGIA [None]
  - SKIN BURNING SENSATION [None]
  - FLUSHING [None]
  - HOT FLUSH [None]
